FAERS Safety Report 19849685 (Version 1)
Quarter: 2021Q3

REPORT INFORMATION
  Report Type: Spontaneous
  Country: CN (occurrence: CN)
  Receive Date: 20210917
  Receipt Date: 20210917
  Transmission Date: 20211014
  Serious: Yes (Hospitalization)
  Sender: FDA-Public Use
  Company Number: CN-ASTRAZENECA-2021A725318

PATIENT
  Sex: Female

DRUGS (1)
  1. SEROQUEL [Suspect]
     Active Substance: QUETIAPINE FUMARATE
     Indication: SCHIZOPHRENIA
     Dosage: .2 G AND 150 MG, AND IF THE DOSE WAS REDUCED TO 50 MG
     Route: 048

REACTIONS (2)
  - Product use issue [Unknown]
  - Sleep disorder [Recovered/Resolved]
